FAERS Safety Report 7835805-8 (Version None)
Quarter: 2011Q4

REPORT INFORMATION
  Report Type: 
  Country: None (occurrence: None)
  Receive Date: 20111024
  Receipt Date: 20111011
  Transmission Date: 20120403
  Serious: Yes (Other)
  Sender: FDA-Public Use
  Company Number: US-GILEAD-2011-0035663

PATIENT

DRUGS (3)
  1. ACETAMINOPHEN [Concomitant]
     Indication: PRODUCT USED FOR UNKNOWN INDICATION
  2. TENOFOVIR DISOPROXIL FUMARATE [Suspect]
     Dates: start: 20090617, end: 20100906
  3. LEVONORGESTREL WITH ETHINYL ESTRADIOL [Concomitant]
     Indication: PRODUCT USED FOR UNKNOWN INDICATION
     Dates: start: 20090617

REACTIONS (1)
  - ABORTION SPONTANEOUS [None]
